FAERS Safety Report 22257606 (Version 2)
Quarter: 2023Q2

REPORT INFORMATION
  Report Type: Spontaneous
  Country: BE (occurrence: BE)
  Receive Date: 20230427
  Receipt Date: 20230628
  Transmission Date: 20230722
  Serious: Yes (Other)
  Sender: FDA-Public Use
  Company Number: BE-NOVOPROD-1056444

PATIENT
  Age: 70 Year
  Sex: Male

DRUGS (13)
  1. RYBELSUS [Suspect]
     Active Substance: SEMAGLUTIDE
     Indication: Product used for unknown indication
     Dosage: 3 MG
     Route: 048
     Dates: start: 20230302, end: 20230401
  2. RYBELSUS [Suspect]
     Active Substance: SEMAGLUTIDE
     Indication: Product used for unknown indication
     Dosage: 7 MG
     Route: 048
  3. ASPIRIN [Concomitant]
     Active Substance: ASPIRIN
     Dosage: 80.00 MG(DURATION TREATMENT: MULTIPLE YEARS)
  4. BISOPROLOL [Concomitant]
     Active Substance: BISOPROLOL
     Indication: Hypertension
     Dosage: 10.00 MG(DURATION TREATMENT: MULTIPLE YEARS)
     Route: 048
  5. LORAZEPAM [Concomitant]
     Active Substance: LORAZEPAM
     Dosage: 2.50 MG(DURATION TREATMENT: MULTIPLE YEARS)
     Route: 048
  6. METFORMIN HYDROCHLORIDE [Concomitant]
     Active Substance: METFORMIN HYDROCHLORIDE
     Dosage: 2500.00 MG, QD(DURATION TREATMENT: MULTIPLE YEARS)
     Route: 048
  7. LINAGLIPTIN [Concomitant]
     Active Substance: LINAGLIPTIN
     Dosage: 160.00 MG
     Route: 048
  8. CRESTOR [Concomitant]
     Active Substance: ROSUVASTATIN CALCIUM
     Indication: Hypercholesterolaemia
     Dosage: 10.00 MG(SWITCH FROM CRESTOR TO MYROSOR - DURATION TREATMENT: MULTIPLE YEARS)
  9. MYROSOR [Concomitant]
     Indication: Hypercholesterolaemia
     Dosage: 10.00 MG (DURATION TREATMENT: MULTIPLE YEARS)
     Route: 048
  10. METATOP [LORMETAZEPAM] [Concomitant]
     Dosage: 2.00 MG (DURATION TREATMENT: MULTIPLE YEARS)
  11. VALSARTAN [Concomitant]
     Active Substance: VALSARTAN
     Dosage: 160.00 MG (DURATION TREATMENT: MULTIPLE YEARS)
     Route: 048
  12. LERCANIDIPINE HYDROCHLORIDE [Concomitant]
     Active Substance: LERCANIDIPINE HYDROCHLORIDE
     Dosage: 150.00 MG (DURATION TREATMENT: MULTIPLE YEARS)
     Route: 048
  13. ALLOPURINOL [Concomitant]
     Active Substance: ALLOPURINOL
     Dosage: DURATION TREATMENT: MULTIPLE YEARS

REACTIONS (1)
  - Fournier^s gangrene [Unknown]
